FAERS Safety Report 12671951 (Version 1)
Quarter: 2016Q3

REPORT INFORMATION
  Report Type: Spontaneous
  Country: US (occurrence: None)
  Receive Date: 20160819
  Receipt Date: 20160819
  Transmission Date: 20161109
  Serious: Yes (Hospitalization)
  Sender: FDA-Public Use
  Company Number: None

PATIENT
  Age: 61 Year
  Sex: Female
  Weight: 98.9 kg

DRUGS (14)
  1. INVOKAMET [Suspect]
     Active Substance: CANAGLIFLOZIN\METFORMIN HYDROCHLORIDE
     Indication: TYPE 2 DIABETES MELLITUS
     Route: 048
  2. NORCO [Concomitant]
     Active Substance: ACETAMINOPHEN\HYDROCODONE BITARTRATE
  3. PEPCID [Concomitant]
     Active Substance: FAMOTIDINE
  4. LOPRESSOR [Concomitant]
     Active Substance: METOPROLOL TARTRATE
  5. ZOFRAN [Concomitant]
     Active Substance: ONDANSETRON HYDROCHLORIDE
  6. SENNA [Concomitant]
     Active Substance: SENNA LEAF\SENNOSIDES\SENNOSIDES A AND B
  7. TYLENOL [Concomitant]
     Active Substance: ACETAMINOPHEN
  8. NOVOLOG [Concomitant]
     Active Substance: INSULIN ASPART
  9. SPIRIVA [Concomitant]
     Active Substance: TIOTROPIUM BROMIDE MONOHYDRATE
  10. ROZEREM [Concomitant]
     Active Substance: RAMELTEON
  11. GABAPENTIN. [Concomitant]
     Active Substance: GABAPENTIN
  12. MORPHINE [Concomitant]
     Active Substance: MORPHINE
  13. HYDRALAZINE [Concomitant]
     Active Substance: HYDRALAZINE HYDROCHLORIDE
  14. SILVADENE [Concomitant]
     Active Substance: SILVER SULFADIAZINE

REACTIONS (2)
  - Diabetic foot [None]
  - Ketoacidosis [None]

NARRATIVE: CASE EVENT DATE: 20160815
